FAERS Safety Report 9050643 (Version 2)
Quarter: 2013Q1

REPORT INFORMATION
  Report Type: Report from Study
  Country: DE (occurrence: DE)
  Receive Date: 20130205
  Receipt Date: 20130222
  Transmission Date: 20140127
  Serious: Yes (Death, Other)
  Sender: FDA-Public Use
  Company Number: DE-PFIZER INC-2013043315

PATIENT
  Age: 70 Year
  Sex: 0

DRUGS (8)
  1. TEMSIROLIMUS [Suspect]
     Indication: CENTRAL NERVOUS SYSTEM LYMPHOMA
     Dosage: 75 MG, WEEKLY
     Route: 042
     Dates: start: 20121218, end: 20130130
  2. KEPPRA [Concomitant]
     Dosage: 2000 MG, 2X/DAY
     Route: 042
  3. ACICLOVIR [Concomitant]
     Dosage: 400 MG, 2X/DAY
     Route: 042
  4. COTRIM FORTE-RATIOPHARM [Concomitant]
     Dosage: 160 MG,  2X/DAY, MONDAY, WEDNESDAY, FRIDAY
  5. PREDNISOLON [Concomitant]
     Dosage: 100 MG, 1X/DAY
     Route: 042
  6. ZIENAM [Concomitant]
     Dosage: 500 UNK, 4X/DAY
  7. LASIX [Concomitant]
     Dosage: 40 UNK, 1X/DAY
     Route: 042
  8. TAVEGIL [Concomitant]
     Indication: PROPHYLAXIS
     Dosage: ADMINISTERED AS PER STUDY PROTOCOL

REACTIONS (3)
  - Atrial fibrillation [Not Recovered/Not Resolved]
  - Disease progression [Fatal]
  - Central nervous system lymphoma [Fatal]
